FAERS Safety Report 20359845 (Version 1)
Quarter: 2022Q1

REPORT INFORMATION
  Report Type: Spontaneous
  Country: GB (occurrence: GB)
  Receive Date: 20220121
  Receipt Date: 20220121
  Transmission Date: 20220424
  Serious: Yes (Hospitalization)
  Sender: FDA-Public Use
  Company Number: None

PATIENT
  Age: 47 Year
  Sex: Male
  Weight: 80 kg

DRUGS (5)
  1. DUPIXENT [Suspect]
     Active Substance: DUPILUMAB
     Indication: Eczema
     Dosage: 600 MG
     Route: 058
     Dates: start: 20211215, end: 20211220
  2. METHOTREXATE [Concomitant]
     Active Substance: METHOTREXATE
  3. OMEPRAZOLE [Concomitant]
     Active Substance: OMEPRAZOLE
  4. SIMVASTATIN [Concomitant]
     Active Substance: SIMVASTATIN
  5. RAMIPRIL [Concomitant]
     Active Substance: RAMIPRIL

REACTIONS (3)
  - Drug eruption [Recovering/Resolving]
  - Mouth ulceration [Unknown]
  - Pustule [Unknown]

NARRATIVE: CASE EVENT DATE: 20211217
